FAERS Safety Report 6437895-6 (Version None)
Quarter: 2009Q4

REPORT INFORMATION
  Report Type: 
  Country: None (occurrence: None)
  Receive Date: 20091112
  Receipt Date: 20081125
  Transmission Date: 20100525
  Serious: No
  Sender: FDA-Public Use
  Company Number: US-ASTRAZENECA-2009UW17361

PATIENT
  Sex: Male

DRUGS (6)
  1. PRILOSEC OTC [Suspect]
     Indication: BARRETT'S OESOPHAGUS
     Dosage: 1 TABLET, 1 /DAY FOR 244 DAYS
     Route: 048
     Dates: start: 20080325, end: 20081124
  2. PRILOSEC OTC [Suspect]
     Indication: DYSPEPSIA
     Dosage: 1 TABLET, 1 /DAY FOR 244 DAYS
     Route: 048
     Dates: start: 20080325, end: 20081124
  3. PRILOSEC OTC [Suspect]
     Indication: GASTROOESOPHAGEAL REFLUX DISEASE
     Dosage: 1 TABLET, 1 /DAY FOR 244 DAYS
     Route: 048
     Dates: start: 20080325, end: 20081124
  4. PRILOSEC OTC [Suspect]
  5. PRILOSEC OTC [Suspect]
  6. PRILOSEC OTC [Suspect]

REACTIONS (7)
  - ARTHRALGIA [None]
  - BONE PAIN [None]
  - INCORRECT DRUG ADMINISTRATION DURATION [None]
  - ORAL DISORDER [None]
  - SENSITIVITY OF TEETH [None]
  - TOOTH DISORDER [None]
  - TOOTHACHE [None]
